FAERS Safety Report 15296060 (Version 1)
Quarter: 2018Q3

REPORT INFORMATION
  Report Type: Spontaneous
  Country: US (occurrence: US)
  Receive Date: 20180820
  Receipt Date: 20180820
  Transmission Date: 20181010
  Serious: No
  Sender: FDA-Public Use
  Company Number: US-SA-2018SA061167

PATIENT
  Age: 14 Year
  Sex: Male
  Weight: 47.6 kg

DRUGS (4)
  1. SODIUM CHLORIDE. [Concomitant]
     Active Substance: SODIUM CHLORIDE
     Dosage: 10 ML,UNK
     Route: 042
     Dates: start: 20090313
  2. CEREZYME [Suspect]
     Active Substance: IMIGLUCERASE
     Indication: TYPE V HYPERLIPIDAEMIA
  3. ZOFRAN [ONDANSETRON] [Concomitant]
     Indication: PREMEDICATION
     Dosage: 1.8 MG,UNK
     Route: 048
     Dates: start: 20080313
  4. CEREZYME [Suspect]
     Active Substance: IMIGLUCERASE
     Indication: GAUCHER^S DISEASE
     Dosage: 1800 DF,QOW
     Route: 041
     Dates: start: 20050406

REACTIONS (5)
  - Headache [Recovering/Resolving]
  - Pyrexia [Not Recovered/Not Resolved]
  - Influenza [Unknown]
  - Nausea [Recovering/Resolving]
  - Vomiting [Recovering/Resolving]

NARRATIVE: CASE EVENT DATE: 20180215
